FAERS Safety Report 19495849 (Version 1)
Quarter: 2021Q3

REPORT INFORMATION
  Report Type: Spontaneous
  Country: US (occurrence: US)
  Receive Date: 20210701
  Receipt Date: 20210701
  Transmission Date: 20211014
  Serious: Yes (Life-Threatening, Hospitalization, Disabling, Other)
  Sender: FDA-Public Use
  Company Number: None

PATIENT
  Age: 54 Year
  Sex: Female
  Weight: 89.1 kg

DRUGS (2)
  1. CHEMOTHERAPY [Concomitant]
     Active Substance: UNSPECIFIED INGREDIENT
  2. METFORMIN HCL 500 MG [Suspect]
     Active Substance: METFORMIN HYDROCHLORIDE
     Indication: TYPE 2 DIABETES MELLITUS
     Dates: start: 20201001, end: 20210414

REACTIONS (5)
  - Mass [None]
  - Metastases to lung [None]
  - Metastases to stomach [None]
  - Colon cancer stage IV [None]
  - Pulmonary mass [None]

NARRATIVE: CASE EVENT DATE: 20210524
